FAERS Safety Report 15453240 (Version 1)
Quarter: 2018Q4

REPORT INFORMATION
  Report Type: Spontaneous
  Country: CH (occurrence: CH)
  Receive Date: 20181001
  Receipt Date: 20181001
  Transmission Date: 20190204
  Serious: Yes (Other)
  Sender: FDA-Public Use
  Company Number: CH-PFIZER INC-2018387846

PATIENT
  Age: 26 Year
  Sex: Female

DRUGS (7)
  1. GLUCOPHAGE [Suspect]
     Active Substance: METFORMIN HYDROCHLORIDE
     Dosage: 500 MG, 1X/DAY
     Route: 048
     Dates: start: 20180820
  2. GILENYA [Suspect]
     Active Substance: FINGOLIMOD HYDROCHLORIDE
     Dosage: 0.5 MG, 1X/DAY
     Route: 048
     Dates: start: 201611, end: 201804
  3. BELARA [Suspect]
     Active Substance: CHLORMADINONE ACETATE\ETHINYL ESTRADIOL
     Dosage: INTERMITTENTLY
     Route: 048
     Dates: start: 2013
  4. OCREVUS [Suspect]
     Active Substance: OCRELIZUMAB
     Dosage: 300MG IN TOTAL
     Route: 042
     Dates: start: 20180820, end: 20180820
  5. CURAKNE [Suspect]
     Active Substance: ISOTRETINOIN
     Dosage: 5MG, 1X/DAY INTERMITTENTLY
     Route: 048
     Dates: start: 2013
  6. ALDACTONE [Suspect]
     Active Substance: SPIRONOLACTONE
     Dosage: UNK UNK, 1X/DAY
     Route: 048
     Dates: start: 20180813
  7. MEDIAVEN [Concomitant]
     Active Substance: NAFTAZONE
     Dosage: UNK
     Dates: start: 2018

REACTIONS (1)
  - Hepatocellular injury [Not Recovered/Not Resolved]

NARRATIVE: CASE EVENT DATE: 20180518
